FAERS Safety Report 5174302-8 (Version None)
Quarter: 2006Q4

REPORT INFORMATION
  Report Type: 
  Country: None (occurrence: None)
  Receive Date: 20061214
  Receipt Date: 20060825
  Transmission Date: 20070319
  Serious: Yes (Death, Hospitalization)
  Sender: FDA-Public Use
  Company Number: US-ELI_LILLY_AND_COMPANY-US200608005568

PATIENT
  Age: 71 Year
  Sex: Male
  Weight: 72.562 kg

DRUGS (3)
  1. ZYPREXA [Suspect]
     Dosage: 5 MG, UNK
     Dates: start: 20040101, end: 20050101
  2. TEMAZEPAM [Concomitant]
     Dates: start: 20050201
  3. PREDNISOLONE [Concomitant]
     Dates: start: 20041201

REACTIONS (4)
  - CONDITION AGGRAVATED [None]
  - DEATH [None]
  - DIABETES MELLITUS [None]
  - RENAL DISORDER [None]
